FAERS Safety Report 5746629-X (Version None)
Quarter: 2008Q2

REPORT INFORMATION
  Report Type: 
  Country: None (occurrence: None)
  Receive Date: 20080522
  Receipt Date: 20080519
  Transmission Date: 20081010
  Serious: Yes (Hospitalization)
  Sender: FDA-Public Use
  Company Number: PHNU2008DE01492

PATIENT
  Age: 82 Year
  Sex: Male
  Weight: 87 kg

DRUGS (5)
  1. LANTUS [Concomitant]
     Dosage: 4 MG, QD
     Route: 048
  2. AMLODIPINE [Concomitant]
     Dosage: 1 DF, BID
     Route: 048
     Dates: start: 20080107
  3. ASPIRIN [Concomitant]
     Dosage: 1 DF, QD
     Route: 048
     Dates: start: 20071115
  4. ISOSORBIDE DINITRATE [Concomitant]
     Dosage: 1 DF, QD
     Route: 048
     Dates: start: 20030101
  5. RASILEZ [Suspect]
     Indication: HYPERTENSION
     Dosage: 150 MG/D
     Route: 048
     Dates: start: 20071214, end: 20080401

REACTIONS (10)
  - ALANINE AMINOTRANSFERASE INCREASED [None]
  - ASPARTATE AMINOTRANSFERASE INCREASED [None]
  - BIOPSY BONE MARROW ABNORMAL [None]
  - HAEMATOCRIT DECREASED [None]
  - HAEMOGLOBIN DECREASED [None]
  - MONOCYTOSIS [None]
  - PANCYTOPENIA [None]
  - PROSTATIC OPERATION [None]
  - RED BLOOD CELL COUNT DECREASED [None]
  - THROMBOCYTOPENIA [None]
